FAERS Safety Report 7262283-2 (Version None)
Quarter: 2011Q1

REPORT INFORMATION
  Report Type: 
  Country: None (occurrence: None)
  Receive Date: 20110120
  Receipt Date: 20110114
  Transmission Date: 20110831
  Serious: Yes (Death)
  Sender: FDA-Public Use
  Company Number: 2010US004925

PATIENT
  Age: 54 Year
  Sex: Male
  Weight: 112 kg

DRUGS (9)
  1. GABAPENTIN [Concomitant]
  2. ZOCOR [Concomitant]
  3. PROGRAF [Suspect]
     Indication: RENAL TRANSPLANT
     Dosage: 4.5 MG, BID, ORAL
     Route: 048
     Dates: start: 20080605, end: 20100801
  4. KLOR-CON [Concomitant]
  5. NOVOLOG [Concomitant]
  6. NORVASC [Concomitant]
  7. LOPRESSOR [Concomitant]
  8. MYCOPHENOLIC ACID [Concomitant]
  9. LASIX [Concomitant]

REACTIONS (1)
  - FALL [None]
